FAERS Safety Report 8030229-5 (Version None)
Quarter: 2012Q1

REPORT INFORMATION
  Report Type: 
  Country: None (occurrence: None)
  Receive Date: 20120109
  Receipt Date: 20111228
  Transmission Date: 20120608
  Serious: Yes (Hospitalization, Other)
  Sender: FDA-Public Use
  Company Number: PHHY2010JP56155

PATIENT
  Sex: Female
  Weight: 65 kg

DRUGS (5)
  1. FAMOTIDINE [Suspect]
     Indication: GASTRITIS
     Dosage: 10 MG, DAILY
     Route: 048
     Dates: start: 20091009
  2. CALBLOCK [Suspect]
     Indication: HYPERTENSION
     Dosage: 16 MG, DAILY
     Route: 048
     Dates: start: 20080101
  3. DIOVAN HCT [Suspect]
     Indication: HYPERTENSION
     Dosage: 1 DF, QD
     Route: 048
     Dates: start: 20100716
  4. FOSAMAX [Suspect]
     Indication: OSTEOPOROSIS
     Dosage: 05 MG
     Route: 048
     Dates: start: 20090313
  5. ASPIRIN [Suspect]
     Indication: THROMBOSIS PROPHYLAXIS
     Dosage: 100 MG, QD
     Route: 048
     Dates: start: 20100617

REACTIONS (6)
  - VIITH NERVE PARALYSIS [None]
  - DYSLALIA [None]
  - HEMIPLEGIA [None]
  - BLOOD PRESSURE DIASTOLIC DECREASED [None]
  - CEREBRAL INFARCTION [None]
  - HYPOKINESIA [None]
